FAERS Safety Report 6179376-3 (Version None)
Quarter: 2009Q2

REPORT INFORMATION
  Report Type: 
  Country: None (occurrence: None)
  Receive Date: 20090505
  Receipt Date: 20090428
  Transmission Date: 20091009
  Serious: Yes (Other)
  Sender: FDA-Public Use
  Company Number: BR-ASTRAZENECA-2009UW10742

PATIENT
  Age: 77 Year
  Sex: Male
  Weight: 73 kg

DRUGS (2)
  1. OMEPRAZOLE [Suspect]
     Indication: ULCER
     Route: 048
     Dates: start: 19990101
  2. CASODEX [Concomitant]
     Indication: PROSTATE CANCER
     Route: 048

REACTIONS (2)
  - HYPERTENSION [None]
  - PROSTATE CANCER [None]
